FAERS Safety Report 18873806 (Version 1)
Quarter: 2021Q1

REPORT INFORMATION
  Report Type: Spontaneous
  Country: CO (occurrence: CO)
  Receive Date: 20210210
  Receipt Date: 20210210
  Transmission Date: 20210420
  Serious: Yes (Death, Other)
  Sender: FDA-Public Use
  Company Number: CO-COLLEGIUM PHARMACEUTICAL, INC.-2021CGM00081

PATIENT
  Age: 70 Year
  Sex: Male

DRUGS (2)
  1. NUCYNTA [Suspect]
     Active Substance: TAPENTADOL HYDROCHLORIDE
     Indication: BACK PAIN
     Dosage: 50 MG, 3X/DAY (EVERY 8 HOURS)
     Route: 048
     Dates: start: 20210116, end: 20210118
  2. PREGABALIN. [Suspect]
     Active Substance: PREGABALIN
     Indication: BACK PAIN
     Dosage: 75 MG, 1X/DAY
     Dates: start: 20210117, end: 20210118

REACTIONS (4)
  - Somnolence [Unknown]
  - Decreased appetite [Unknown]
  - Drug ineffective [Unknown]
  - Cardio-respiratory arrest [Fatal]

NARRATIVE: CASE EVENT DATE: 20210116
